FAERS Safety Report 6855841-8 (Version None)
Quarter: 2010Q3

REPORT INFORMATION
  Report Type: 
  Country: None (occurrence: None)
  Receive Date: 20100715
  Receipt Date: 20100715
  Transmission Date: 20110219
  Serious: Yes (Life-Threatening, Hospitalization)
  Sender: FDA-Public Use
  Company Number: None

PATIENT
  Age: 42 Year
  Sex: Male
  Weight: 92 kg

DRUGS (1)
  1. DIETHYLPROPION HYDROCHLORIDE 75MG TAB [Suspect]
     Indication: WEIGHT CONTROL
     Dosage: 75 MG ORALLY
     Dates: start: 20100630

REACTIONS (6)
  - ANXIETY [None]
  - DIZZINESS [None]
  - HEADACHE [None]
  - MYALGIA [None]
  - PNEUMONIA [None]
  - VOMITING [None]
